FAERS Safety Report 21402383 (Version 7)
Quarter: 2024Q1

REPORT INFORMATION
  Report Type: Report from Study
  Country: US (occurrence: US)
  Receive Date: 20221003
  Receipt Date: 20240229
  Transmission Date: 20240410
  Serious: Yes (Other)
  Sender: FDA-Public Use
  Company Number: US-ABBVIE-4134949

PATIENT
  Age: 73 Year
  Sex: Female

DRUGS (4)
  1. SKYRIZI [Suspect]
     Active Substance: RISANKIZUMAB-RZAA
     Indication: Psoriasis
     Route: 058
     Dates: start: 20230123
  2. SKYRIZI [Suspect]
     Active Substance: RISANKIZUMAB-RZAA
     Dosage: LAST ADMIN DATE: 2022
     Route: 058
     Dates: start: 202204
  3. SKYRIZI [Suspect]
     Active Substance: RISANKIZUMAB-RZAA
     Route: 058
     Dates: start: 20220816
  4. SKYRIZI [Suspect]
     Active Substance: RISANKIZUMAB-RZAA
     Dosage: LAST ADMIN DATE: 2022
     Route: 058
     Dates: start: 20220503

REACTIONS (5)
  - Bladder cancer [Recovered/Resolved]
  - Bladder cancer [Recovering/Resolving]
  - Bacterial infection [Recovered/Resolved]
  - Benign neoplasm of thyroid gland [Unknown]
  - Bladder neoplasm [Recovering/Resolving]

NARRATIVE: CASE EVENT DATE: 20220928
